FAERS Safety Report 4623288-0 (Version None)
Quarter: 2005Q1

REPORT INFORMATION
  Report Type: 
  Country: None (occurrence: None)
  Receive Date: 20050329
  Receipt Date: 20050318
  Transmission Date: 20050727
  Serious: Yes (Hospitalization, Other)
  Sender: FDA-Public Use
  Company Number: K11-2005-0015545

PATIENT
  Age: 30 Year
  Sex: Female

DRUGS (11)
  1. OXYCONTIN [Suspect]
     Indication: DRUG USE FOR UNKNOWN INDICATION
     Dosage: ORAL
     Route: 048
  2. ACETAMINOPHEN AND HYDROCODONE BITARTRATE [Suspect]
     Indication: DRUG USE FOR UNKNOWN INDICATION
     Dosage: ORAL
     Route: 048
  3. MUSCLE RELAXANTS () [Suspect]
     Indication: DRUG USE FOR UNKNOWN INDICATION
     Dosage: ORAL
     Route: 048
  4. AMPHETAMINE SULFATE TAB [Suspect]
     Indication: DRUG USE FOR UNKNOWN INDICATION
     Dosage: ORAL
     Route: 048
  5. METHYLPHENIDATE (METHYLPHENIDATE) [Suspect]
     Indication: DRUG USE FOR UNKNOWN INDICATION
  6. AMITRIPTYLINE HCL [Suspect]
     Indication: DRUG USE FOR UNKNOWN INDICATION
  7. OTHER ANTI-ASTHMATICS FOR SYSTEMIC USE () [Suspect]
     Indication: DRUG USE FOR UNKNOWN INDICATION
  8. ESTROGEN NOS (ESTROGEN NOS) [Suspect]
     Indication: DRUG USE FOR UNKNOWN INDICATION
     Dosage: ORAL
     Route: 048
  9. OTHER ANALGESICS AND ANTIPYRETICS ( ) [Suspect]
     Indication: DRUG USE FOR UNKNOWN INDICATION
     Dosage: ORAL
     Route: 048
  10. XANAX [Suspect]
     Indication: DRUG USE FOR UNKNOWN INDICATION
     Dosage: SEE TEXT
  11. ... [Concomitant]

REACTIONS (8)
  - AGGRESSION [None]
  - BLOOD PRESSURE DECREASED [None]
  - COMA [None]
  - DRUG SCREEN POSITIVE [None]
  - MULTIPLE DRUG OVERDOSE [None]
  - NEGATIVISM [None]
  - SINUS BRADYCARDIA [None]
  - TREATMENT NONCOMPLIANCE [None]
